FAERS Safety Report 5869313-0 (Version None)
Quarter: 2008Q3

REPORT INFORMATION
  Report Type: 
  Country: None (occurrence: None)
  Receive Date: 20080828
  Receipt Date: 20080808
  Transmission Date: 20090109
  Serious: Yes (Other)
  Sender: FDA-Public Use
  Company Number: GB-JNJFOC-20080802013

PATIENT
  Age: 69 Year
  Sex: Female

DRUGS (7)
  1. DECITABINE (DECITABINE) LYOPHILIZED [Suspect]
     Indication: OVARIAN CANCER
     Dosage: SEE IMAGE
     Route: 042
     Dates: start: 20080430, end: 20080430
  2. DECITABINE (DECITABINE) LYOPHILIZED [Suspect]
     Indication: OVARIAN CANCER
     Dosage: SEE IMAGE
     Route: 042
     Dates: start: 20080625, end: 20080625
  3. DECITABINE (DECITABINE) LYOPHILIZED [Suspect]
     Indication: OVARIAN CANCER
     Dosage: SEE IMAGE
     Route: 042
     Dates: start: 20080723, end: 20080723
  4. CARBOPLATIN [Suspect]
     Indication: OVARIAN CANCER
     Dosage: SEE IMAGE
     Route: 042
     Dates: start: 20080507, end: 20080507
  5. CARBOPLATIN [Suspect]
     Indication: OVARIAN CANCER
     Dosage: SEE IMAGE
     Route: 042
     Dates: start: 20080702, end: 20080702
  6. CARBOPLATIN [Suspect]
     Indication: OVARIAN CANCER
     Dosage: SEE IMAGE
     Route: 042
     Dates: start: 20080730, end: 20080730
  7. CARBOPLATIN [Suspect]
     Indication: OVARIAN CANCER
     Dosage: SEE IMAGE
     Route: 042
     Dates: start: 20080806

REACTIONS (4)
  - FLUSHING [None]
  - HYPERSENSITIVITY [None]
  - INFUSION RELATED REACTION [None]
  - VOMITING [None]
